FAERS Safety Report 20407024 (Version 1)
Quarter: 2022Q1

REPORT INFORMATION
  Report Type: Spontaneous
  Country: US (occurrence: None)
  Receive Date: 20220131
  Receipt Date: 20220131
  Transmission Date: 20220423
  Serious: Yes (Hospitalization)
  Sender: FDA-Public Use
  Company Number: None

PATIENT
  Age: 74 Year
  Sex: Female

DRUGS (1)
  1. IBRANCE [Suspect]
     Active Substance: PALBOCICLIB
     Indication: Breast cancer
     Dosage: OTHER FREQUENCY : DAILY FOR 21 DAYS ;?
     Route: 048
     Dates: start: 202011

REACTIONS (3)
  - Kidney infection [None]
  - Therapy interrupted [None]
  - Product dose omission issue [None]

NARRATIVE: CASE EVENT DATE: 20220129
